FAERS Safety Report 16795017 (Version 1)
Quarter: 2019Q3

REPORT INFORMATION
  Report Type: Spontaneous
  Country: US (occurrence: US)
  Receive Date: 20190911
  Receipt Date: 20190911
  Transmission Date: 20191005
  Serious: No
  Sender: FDA-Public Use
  Company Number: US-BAYER-2019-162796

PATIENT
  Sex: Female
  Weight: 86 kg

DRUGS (1)
  1. MIRALAX [Suspect]
     Active Substance: POLYETHYLENE GLYCOL 3350
     Indication: GASTROINTESTINAL DISORDER
     Dosage: ALMOST EVERYDAY
     Route: 048

REACTIONS (4)
  - Frequent bowel movements [Unknown]
  - Intentional dose omission [None]
  - Product physical consistency issue [None]
  - Product solubility abnormal [None]
